FAERS Safety Report 10261901 (Version 1)
Quarter: 2014Q2

REPORT INFORMATION
  Report Type: Report from Study
  Country: AR (occurrence: AR)
  Receive Date: 20140626
  Receipt Date: 20140626
  Transmission Date: 20141212
  Serious: Yes (Other)
  Sender: FDA-Public Use
  Company Number: PHHY2014AR078939

PATIENT
  Age: 76 Year
  Sex: Female

DRUGS (2)
  1. DIOVAN D [Suspect]
     Indication: HYPERTENSION
     Dosage: 1 DF (320/25 MG) DAILY
     Route: 048
  2. SINTROM [Suspect]
     Dosage: 4 MG, UNK

REACTIONS (1)
  - Thrombosis [Recovering/Resolving]
